FAERS Safety Report 13615433 (Version 3)
Quarter: 2018Q1

REPORT INFORMATION
  Report Type: Spontaneous
  Country: US (occurrence: US)
  Receive Date: 20170606
  Receipt Date: 20180329
  Transmission Date: 20180508
  Serious: Yes (Other)
  Sender: FDA-Public Use
  Company Number: US-PFIZER INC-2017244078

PATIENT
  Age: 55 Year
  Sex: Male

DRUGS (3)
  1. SUTENT [Suspect]
     Active Substance: SUNITINIB MALATE
     Indication: RENAL CANCER
     Dosage: 50 MG, UNK
     Dates: start: 20170503
  2. SUTENT [Suspect]
     Active Substance: SUNITINIB MALATE
     Dosage: 37.5 MG, UNK
     Dates: start: 20170504
  3. SUTENT [Suspect]
     Active Substance: SUNITINIB MALATE
     Dosage: 37.5 MG, CYCLIC (ONCE DAILY, 3 WEEKS ON/3 WEEKS OFF)
     Dates: start: 20170817

REACTIONS (7)
  - Amnesia [Unknown]
  - Memory impairment [Unknown]
  - Disease recurrence [Unknown]
  - Seizure [Unknown]
  - Headache [Unknown]
  - Inappropriate schedule of drug administration [Unknown]
  - Nightmare [Unknown]
